FAERS Safety Report 8904221 (Version 3)
Quarter: 2013Q2

REPORT INFORMATION
  Report Type: Spontaneous
  Country: US (occurrence: US)
  Receive Date: 20121112
  Receipt Date: 20130416
  Transmission Date: 20140414
  Serious: Yes (Hospitalization, Other)
  Sender: FDA-Public Use
  Company Number: US-009507513-1202USA01299

PATIENT
  Sex: Female

DRUGS (7)
  1. FOSAMAX [Suspect]
     Indication: OSTEOPOROSIS
     Dosage: UNK
     Route: 048
     Dates: start: 1995, end: 2011
  2. FOSAMAX [Suspect]
     Dosage: 10 MG, UNK
     Route: 048
     Dates: start: 199910, end: 20000118
  3. FOSAMAX [Suspect]
     Dosage: 70 MG, UNK
     Route: 048
     Dates: start: 20040927, end: 20080218
  4. ALENDRONATE SODIUM [Suspect]
     Indication: OSTEOPOROSIS
  5. VITAMIN D (UNSPECIFIED) [Concomitant]
     Dosage: UNK, QD
     Dates: start: 2000
  6. VITAMINS (UNSPECIFIED) [Concomitant]
     Dosage: 600 MG, UNK
     Dates: start: 2000
  7. CALCIUM (UNSPECIFIED) [Concomitant]
     Dosage: 200 MG, UNK
     Dates: start: 2000

REACTIONS (25)
  - Femur fracture [Unknown]
  - Fall [Unknown]
  - Intramedullary rod insertion [Unknown]
  - Removal of internal fixation [Unknown]
  - Hip arthroplasty [Unknown]
  - Hip deformity [Unknown]
  - Femur fracture [Recovering/Resolving]
  - Fall [Unknown]
  - Hypothyroidism [Unknown]
  - Blood pressure increased [Not Recovered/Not Resolved]
  - Hormone replacement therapy [Not Recovered/Not Resolved]
  - Patellofemoral pain syndrome [Unknown]
  - Arthroscopy [Unknown]
  - Osteoarthritis [Unknown]
  - Angiopathy [Unknown]
  - Atrial fibrillation [Unknown]
  - Transient ischaemic attack [Unknown]
  - Cystitis interstitial [Unknown]
  - Neck mass [Unknown]
  - Knee arthroplasty [Unknown]
  - Radiculitis [Unknown]
  - Fracture nonunion [Unknown]
  - Device extrusion [Unknown]
  - Spinal column stenosis [Unknown]
  - Intervertebral disc degeneration [Unknown]
